FAERS Safety Report 11883488 (Version 1)
Quarter: 2015Q4

REPORT INFORMATION
  Report Type: Spontaneous
  Country: FR (occurrence: FR)
  Receive Date: 20151231
  Receipt Date: 20151231
  Transmission Date: 20160305
  Serious: Yes (Other)
  Sender: FDA-Public Use
  Company Number: PHHY2015FR171250

PATIENT
  Age: 43 Year
  Sex: Female

DRUGS (1)
  1. METHYLPHENIDATE. [Suspect]
     Active Substance: METHYLPHENIDATE
     Indication: SUBSTANCE USE
     Route: 065
     Dates: start: 2014

REACTIONS (3)
  - Intentional product misuse [Unknown]
  - Tremor [Unknown]
  - Agitation [Unknown]
